FAERS Safety Report 5258416-X (Version None)
Quarter: 2007Q1

REPORT INFORMATION
  Report Type: 
  Country: None (occurrence: None)
  Receive Date: 20070306
  Receipt Date: 20070306
  Transmission Date: 20070707
  Serious: Yes (Hospitalization)
  Sender: FDA-Public Use
  Company Number: None

PATIENT
  Age: 10 Year
  Sex: Female
  Weight: 49.8 kg

DRUGS (6)
  1. IMATINIB MESYLATE [Suspect]
     Indication: ACUTE LYMPHOCYTIC LEUKAEMIA
     Dosage: 300 MG PO DAILY
     Route: 048
     Dates: start: 20070119, end: 20070303
  2. STRATTERA [Concomitant]
  3. CLONIDINE [Concomitant]
  4. PROTONIX [Concomitant]
  5. ZOFRAN [Concomitant]
  6. SEPTRA [Concomitant]

REACTIONS (4)
  - FATIGUE [None]
  - HYPOTENSION [None]
  - OEDEMA PERIPHERAL [None]
  - SOMNOLENCE [None]
